FAERS Safety Report 4275374-5 (Version None)
Quarter: 2004Q1

REPORT INFORMATION
  Report Type: 
  Country: None (occurrence: None)
  Receive Date: 20040116
  Receipt Date: 20040106
  Transmission Date: 20041129
  Serious: Yes (Hospitalization)
  Sender: FDA-Public Use
  Company Number: 18800

PATIENT
  Sex: Female

DRUGS (16)
  1. NIASPAN [Suspect]
     Indication: BLOOD TRIGLYCERIDES INCREASED
     Dosage: 500 MG QHS PO
     Route: 048
  2. MESTINON [Concomitant]
  3. CLARINEX [Concomitant]
  4. ATENOLOL [Concomitant]
  5. DIOVAN [Concomitant]
  6. IMDUR [Concomitant]
  7. LESCOL [Concomitant]
  8. ZETIA [Concomitant]
  9. PRILOSEC [Concomitant]
  10. NAPROSYN [Concomitant]
  11. VITAMIN B6 [Concomitant]
  12. VITAMIN B-12 [Concomitant]
  13. FOLIC ACID [Concomitant]
  14. POTASSIUM [Concomitant]
  15. PLAVIX [Concomitant]
  16. DIAZIDE [Concomitant]

REACTIONS (7)
  - BLISTER [None]
  - DIZZINESS [None]
  - ERYTHEMA [None]
  - FLUSHING [None]
  - LOSS OF CONSCIOUSNESS [None]
  - PRURITUS GENERALISED [None]
  - SYNCOPE [None]
